FAERS Safety Report 5720210-0 (Version None)
Quarter: 2008Q2

REPORT INFORMATION
  Report Type: 
  Country: None (occurrence: None)
  Receive Date: 20080428
  Receipt Date: 20071002
  Transmission Date: 20081010
  Serious: No
  Sender: FDA-Public Use
  Company Number: US-AMGEN-US246079

PATIENT
  Sex: Female
  Weight: 59 kg

DRUGS (7)
  1. SENSIPAR [Suspect]
     Indication: HYPERPARATHYROIDISM SECONDARY
     Route: 048
     Dates: start: 20070822, end: 20071008
  2. PREDNISONE [Concomitant]
     Route: 065
  3. ELAVIL [Concomitant]
     Route: 065
     Dates: start: 20070827
  4. LUNESTA [Concomitant]
     Route: 065
     Dates: start: 20070620
  5. PHOSLO [Concomitant]
     Route: 065
     Dates: start: 20050906
  6. AGGRENOX [Concomitant]
     Route: 065
     Dates: start: 20060809
  7. NEURONTIN [Concomitant]
     Route: 065
     Dates: start: 20060710

REACTIONS (2)
  - MUSCULAR WEAKNESS [None]
  - PAIN IN EXTREMITY [None]
